FAERS Safety Report 9211864 (Version 3)
Quarter: 2014Q2

REPORT INFORMATION
  Report Type: Spontaneous
  Country: US (occurrence: US)
  Receive Date: 20130404
  Receipt Date: 20140408
  Transmission Date: 20141212
  Serious: Yes (Hospitalization)
  Sender: FDA-Public Use
  Company Number: US-B.I. PHARMACEUTICALS,INC./RIDGEFIELD-2013-BI-09114BP

PATIENT
  Sex: Female
  Weight: 99.79 kg

DRUGS (13)
  1. PRADAXA [Suspect]
     Indication: ANTICOAGULANT THERAPY
     Dosage: 150 MG
     Route: 065
     Dates: start: 20110130, end: 20110419
  2. PRADAXA [Suspect]
     Indication: ATRIAL FIBRILLATION
  3. OXYGEN [Concomitant]
     Indication: ASTHMA
     Route: 065
  4. BUMEX [Concomitant]
     Indication: CARDIAC FAILURE CONGESTIVE
     Dosage: 4 MG
     Route: 065
     Dates: start: 201101, end: 201201
  5. DILTIAZEM [Concomitant]
     Indication: ATRIAL FIBRILLATION
     Dosage: 240 MG
     Route: 065
     Dates: start: 201102, end: 201112
  6. METOPROLOL [Concomitant]
     Indication: ATRIAL FIBRILLATION
     Dosage: 100 MG
     Route: 065
     Dates: start: 200805
  7. JANUVIA [Concomitant]
     Indication: DIABETES MELLITUS
     Dosage: 100 MG
     Route: 065
     Dates: start: 2011
  8. METOLAZONE [Concomitant]
     Indication: CARDIAC FAILURE CONGESTIVE
     Dosage: 5 MG
     Route: 065
  9. FEXOFENADINE [Concomitant]
     Dosage: 180 MG
     Route: 065
     Dates: start: 201103
  10. LIPITOR [Concomitant]
     Indication: DYSLIPIDAEMIA
     Route: 065
     Dates: start: 201103, end: 201201
  11. LUNESTA [Concomitant]
     Route: 065
  12. DURICEF [Concomitant]
     Indication: CELLULITIS
     Route: 065
     Dates: start: 20110415
  13. IPRATROPIUM [Concomitant]
     Route: 065

REACTIONS (4)
  - Vaginal haemorrhage [Unknown]
  - Gastrointestinal haemorrhage [Unknown]
  - Hypochromic anaemia [Unknown]
  - Renal impairment [Unknown]
